FAERS Safety Report 18888907 (Version 3)
Quarter: 2021Q1

REPORT INFORMATION
  Report Type: Spontaneous
  Country: JP (occurrence: JP)
  Receive Date: 20210213
  Receipt Date: 20210312
  Transmission Date: 20210420
  Serious: Yes (Other)
  Sender: FDA-Public Use
  Company Number: JP-009507513-2102JPN001010J

PATIENT
  Age: 78 Year
  Sex: Male

DRUGS (3)
  1. KEYTRUDA [Suspect]
     Active Substance: PEMBROLIZUMAB
     Dosage: UNK
     Route: 041
     Dates: start: 20201008
  2. KEYTRUDA [Suspect]
     Active Substance: PEMBROLIZUMAB
     Indication: URETERIC CANCER
     Dosage: UNK
     Route: 041
     Dates: start: 20191206, end: 20200327
  3. MIGLITOL. [Concomitant]
     Active Substance: MIGLITOL
     Indication: TYPE 2 DIABETES MELLITUS
     Dosage: 150 MILLIGRAM
     Route: 065

REACTIONS (1)
  - Diabetes mellitus [Recovering/Resolving]

NARRATIVE: CASE EVENT DATE: 20200327
